FAERS Safety Report 8068837-8 (Version None)
Quarter: 2012Q1

REPORT INFORMATION
  Report Type: 
  Country: None (occurrence: None)
  Receive Date: 20120125
  Receipt Date: 20120120
  Transmission Date: 20120608
  Serious: Yes (Hospitalization)
  Sender: FDA-Public Use
  Company Number: US-BIOGENIDEC-2011BI037982

PATIENT
  Age: 50 Year
  Sex: Female

DRUGS (1)
  1. TYSABRI [Suspect]
     Indication: MULTIPLE SCLEROSIS
     Route: 042
     Dates: start: 20101013, end: 20110727

REACTIONS (5)
  - FALL [None]
  - SURGERY [None]
  - WEIGHT BEARING DIFFICULTY [None]
  - ASTHENIA [None]
  - JOINT SWELLING [None]
